FAERS Safety Report 5959660-6 (Version None)
Quarter: 2008Q4

REPORT INFORMATION
  Report Type: 
  Country: None (occurrence: None)
  Receive Date: 20081110
  Receipt Date: 20080827
  Transmission Date: 20090506
  Serious: No
  Sender: FDA-Public Use
  Company Number: 2008US002157

PATIENT
  Age: 91 Year
  Sex: Female
  Weight: 59.9 kg

DRUGS (3)
  1. LEXISCAN [Suspect]
     Indication: SCAN MYOCARDIAL PERFUSION
     Dosage: 0.4 MG, TOTAL DOSE, IV NOS
     Route: 042
     Dates: start: 20080811, end: 20080811
  2. HYDROCODONE (HYDROCODONE) [Concomitant]
  3. TRIAZOLAM [Concomitant]

REACTIONS (2)
  - ASTHENIA [None]
  - HEADACHE [None]
